FAERS Safety Report 16200128 (Version 13)
Quarter: 2021Q4

REPORT INFORMATION
  Report Type: Report from Study
  Country: US (occurrence: US)
  Receive Date: 20190415
  Receipt Date: 20211203
  Transmission Date: 20220304
  Serious: No
  Sender: FDA-Public Use
  Company Number: US-SA-2019SA102912

PATIENT
  Age: 86 Year
  Sex: Male
  Weight: 136 kg

DRUGS (18)
  1. DUPILUMAB [Suspect]
     Active Substance: DUPILUMAB
     Indication: Dermatitis atopic
     Dosage: UNK UNK, 1X
     Route: 058
  2. DUPILUMAB [Suspect]
     Active Substance: DUPILUMAB
     Dosage: 300 MG, QOW
     Route: 058
     Dates: start: 20190123
  3. DUPILUMAB [Suspect]
     Active Substance: DUPILUMAB
     Dosage: 300 MG, QOW
     Route: 058
  4. DUPILUMAB [Suspect]
     Active Substance: DUPILUMAB
     Dosage: 300 MG, QOW
     Route: 058
     Dates: start: 2020
  5. ATENOLOL [Concomitant]
     Active Substance: ATENOLOL
     Dosage: UNK (OCCASIONAL)
  6. DOXYCYCLINE HYDROCHLORIDE [Concomitant]
     Active Substance: DOXYCYCLINE HYDROCHLORIDE
     Dosage: UNK UNK, QD (1 PER DAY)
  7. ACETAMINOPHEN\ASPIRIN\CAFFEINE\SALICYLAMIDE [Concomitant]
     Active Substance: ACETAMINOPHEN\ASPIRIN\CAFFEINE\SALICYLAMIDE
     Dosage: UNK (OCCASIONAL)
  8. FLUOCINOLONE ACETONIDE [Concomitant]
     Active Substance: FLUOCINOLONE ACETONIDE
     Dosage: UNK (OCCASIONAL)
  9. OMEPRAZOLE [Concomitant]
     Active Substance: OMEPRAZOLE
     Dosage: UNK (OCCASIONAL)
  10. PRAMIPEXOLE [Concomitant]
     Active Substance: PRAMIPEXOLE
  11. TAMSULOSIN [Concomitant]
     Active Substance: TAMSULOSIN
  12. VALACYCLOVIR [Concomitant]
     Active Substance: VALACYCLOVIR HYDROCHLORIDE
     Dosage: UNK
  13. FLUOCINONIDE F [Concomitant]
     Dosage: UNK
  14. FUROSEMIDE [Concomitant]
     Active Substance: FUROSEMIDE
     Dosage: UNK
  15. ATORVASTATIN [Concomitant]
     Active Substance: ATORVASTATIN
     Dosage: UNK
  16. DESOXIMETASONE [Concomitant]
     Active Substance: DESOXIMETASONE
  17. PREDNISONE [Concomitant]
     Active Substance: PREDNISONE
     Dosage: UNK
     Dates: start: 2019
  18. FLUCIN [FLUOCINOLONE ACETONIDE] [Concomitant]
     Dosage: UNK
     Route: 065

REACTIONS (11)
  - Sinusitis [Not Recovered/Not Resolved]
  - Sleep disorder [Not Recovered/Not Resolved]
  - Joint swelling [Not Recovered/Not Resolved]
  - Decreased appetite [Not Recovered/Not Resolved]
  - Depression [Not Recovered/Not Resolved]
  - Rash pruritic [Not Recovered/Not Resolved]
  - Rash [Recovered/Resolved]
  - Arthralgia [Not Recovered/Not Resolved]
  - Dermatitis atopic [Not Recovered/Not Resolved]
  - Rash [Not Recovered/Not Resolved]
  - Skin discomfort [Not Recovered/Not Resolved]

NARRATIVE: CASE EVENT DATE: 20190101
